FAERS Safety Report 17264852 (Version 2)
Quarter: 2020Q1

REPORT INFORMATION
  Report Type: Report from Study
  Country: US (occurrence: US)
  Receive Date: 20200113
  Receipt Date: 20200121
  Transmission Date: 20200409
  Serious: Yes (Death, Other)
  Sender: FDA-Public Use
  Company Number: US-PFIZER INC-2020009505

PATIENT
  Age: 17 Year
  Sex: Female

DRUGS (2)
  1. METHOTREXATE SODIUM. [Suspect]
     Active Substance: METHOTREXATE SODIUM
     Indication: B PRECURSOR TYPE ACUTE LEUKAEMIA
     Dosage: UNK, CYCLIC (MAINTENANCE THERAPY CYCLE 4)
     Route: 037
  2. METHOTREXATE. [Suspect]
     Active Substance: METHOTREXATE
     Indication: B PRECURSOR TYPE ACUTE LEUKAEMIA
     Dosage: UNK UNK, WEEKLY DURING MAINTENANCE THERAPY
     Route: 048

REACTIONS (7)
  - Neurotoxicity [Fatal]
  - Leukoencephalopathy [Fatal]
  - Dependence on respirator [Unknown]
  - Cranial nerve injury [Unknown]
  - Quadriplegia [Unknown]
  - Hallucination, auditory [Unknown]
  - Respiratory distress [Unknown]
